FAERS Safety Report 13439333 (Version 1)
Quarter: 2017Q2

REPORT INFORMATION
  Report Type: Spontaneous
  Country: US (occurrence: US)
  Receive Date: 20170413
  Receipt Date: 20170413
  Transmission Date: 20170830
  Serious: No
  Sender: FDA-Public Use
  Company Number: US-SHIRE-US201706260

PATIENT
  Age: 83 Year
  Sex: Female
  Weight: 66.21 kg

DRUGS (4)
  1. XIIDRA [Suspect]
     Active Substance: LIFITEGRAST
     Indication: DRY EYE
     Dosage: 1 GTT, 2X/DAY:BID
     Route: 047
     Dates: start: 20170201, end: 201702
  2. TYLENOL [Concomitant]
     Active Substance: ACETAMINOPHEN
     Indication: FEELING OF RELAXATION
     Dosage: UNK, UNKNOWN (AT NIGHT)
     Route: 048
  3. XIIDRA [Suspect]
     Active Substance: LIFITEGRAST
     Dosage: 1 GTT, 2X/DAY:BID
     Route: 047
     Dates: start: 20170303, end: 20170316
  4. PRESERVISION [Concomitant]
     Active Substance: MINERALS\VITAMINS
     Indication: SUPPLEMENTATION THERAPY
     Dosage: UNK, 2X/DAY:BID
     Route: 048

REACTIONS (14)
  - Head discomfort [Recovering/Resolving]
  - Rash generalised [Recovered/Resolved]
  - Loss of personal independence in daily activities [Recovering/Resolving]
  - Dyspnoea [Recovering/Resolving]
  - Throat tightness [Recovering/Resolving]
  - Disorientation [Recovering/Resolving]
  - Dizziness [Recovering/Resolving]
  - Swelling face [Recovered/Resolved]
  - Eye pruritus [Recovering/Resolving]
  - Lacrimation increased [Recovering/Resolving]
  - Dysphagia [Recovering/Resolving]
  - Vision blurred [Recovering/Resolving]
  - Chest discomfort [Recovering/Resolving]
  - Pruritus [Recovered/Resolved]

NARRATIVE: CASE EVENT DATE: 20170312
